FAERS Safety Report 5534330-7 (Version None)
Quarter: 2007Q4

REPORT INFORMATION
  Report Type: 
  Country: None (occurrence: None)
  Receive Date: 20071205
  Receipt Date: 20071120
  Transmission Date: 20080405
  Serious: Yes (Other)
  Sender: FDA-Public Use
  Company Number: GB-AMGEN-US255312

PATIENT
  Age: 64 Year
  Sex: Male

DRUGS (1)
  1. ENBREL [Suspect]
     Indication: PSORIASIS
     Dosage: 50 MG WEEKLY IN TWO DIVIDED DOSES
     Route: 065
     Dates: start: 20060901, end: 20061101

REACTIONS (3)
  - KERATOACANTHOMA [None]
  - PSORIASIS [None]
  - SQUAMOUS CELL CARCINOMA [None]
